FAERS Safety Report 9067817 (Version 1)
Quarter: 2013Q1

REPORT INFORMATION
  Report Type: Spontaneous
  Country: AU (occurrence: AU)
  Receive Date: 20130215
  Receipt Date: 20130215
  Transmission Date: 20140127
  Serious: Yes (Other)
  Sender: FDA-Public Use
  Company Number: AU-MERCK-1302AUS006103

PATIENT
  Age: 67 Year
  Sex: Male

DRUGS (3)
  1. RIBAVIRIN [Suspect]
     Dosage: UNK
  2. INTERFERON (UNSPECIFIED) [Suspect]
     Indication: HEPATIC CIRRHOSIS
  3. TELAPREVIR [Suspect]
     Indication: HEPATIC CIRRHOSIS
     Dosage: 750 MG, TID
     Route: 048
     Dates: start: 20120810

REACTIONS (2)
  - Neuropathy peripheral [Unknown]
  - Skin fissures [Unknown]
